FAERS Safety Report 18486197 (Version 1)
Quarter: 2020Q4

REPORT INFORMATION
  Report Type: Report from Study
  Country: CN (occurrence: CN)
  Receive Date: 20201110
  Receipt Date: 20201110
  Transmission Date: 20210114
  Serious: Yes (Death, Other)
  Sender: FDA-Public Use
  Company Number: NVSC2020CN301187

PATIENT
  Age: 53 Year
  Sex: Male

DRUGS (1)
  1. GLIVEC [Suspect]
     Active Substance: IMATINIB MESYLATE
     Indication: CHRONIC MYELOID LEUKAEMIA
     Route: 065

REACTIONS (4)
  - Death [Fatal]
  - Abdominal mass [Unknown]
  - Blast crisis in myelogenous leukaemia [Unknown]
  - Abdominal pain [Unknown]

NARRATIVE: CASE EVENT DATE: 202009
